FAERS Safety Report 19831593 (Version 1)
Quarter: 2021Q3

REPORT INFORMATION
  Report Type: Spontaneous
  Country: US (occurrence: US)
  Receive Date: 20210915
  Receipt Date: 20210915
  Transmission Date: 20211014
  Serious: No
  Sender: FDA-Public Use
  Company Number: US-SA-2021SA301392

PATIENT
  Age: 64 Year
  Sex: Female

DRUGS (1)
  1. DUPIXENT [Suspect]
     Active Substance: DUPILUMAB
     Dosage: 300MG/2ML, 300 MG, FREUENCY: OTHER
     Route: 058
     Dates: start: 20210613

REACTIONS (7)
  - Eye pain [Unknown]
  - Product dose omission issue [Unknown]
  - Eye discharge [Unknown]
  - Erythema [Unknown]
  - Purulent discharge [Unknown]
  - Skin exfoliation [Unknown]
  - Pruritus [Unknown]

NARRATIVE: CASE EVENT DATE: 2021
